FAERS Safety Report 4934719-0 (Version None)
Quarter: 2006Q1

REPORT INFORMATION
  Report Type: 
  Country: None (occurrence: None)
  Receive Date: 20060307
  Receipt Date: 20051103
  Transmission Date: 20060701
  Serious: Yes (Death, Hospitalization)
  Sender: FDA-Public Use
  Company Number: US-MERCK-0511USA00599

PATIENT
  Age: 52 Year
  Sex: Male
  Weight: 123 kg

DRUGS (3)
  1. VIOXX [Suspect]
     Indication: ARTHRALGIA
     Route: 048
     Dates: start: 20040401, end: 20040429
  2. ASPIRIN [Concomitant]
     Route: 065
     Dates: start: 20010101, end: 20040101
  3. ADVIL [Concomitant]
     Route: 065
     Dates: start: 20010101, end: 20040101

REACTIONS (1)
  - MYOCARDIAL INFARCTION [None]
